FAERS Safety Report 7711438-9 (Version None)
Quarter: 2011Q3

REPORT INFORMATION
  Report Type: 
  Country: None (occurrence: None)
  Receive Date: 20110823
  Receipt Date: 20110808
  Transmission Date: 20111222
  Serious: Yes (Hospitalization, Other)
  Sender: FDA-Public Use
  Company Number: 2011SP039041

PATIENT
  Age: 37 Year
  Sex: Male
  Weight: 83 kg

DRUGS (5)
  1. RIBAVIRIN [Suspect]
     Indication: HEPATITIS C
     Dosage: 1000 MG, QD, PO
     Route: 048
     Dates: start: 20110517
  2. PEGINTERFERON ALFA-2B [Suspect]
     Indication: HEPATITIS C
     Dosage: 120 ,CG,QW, SC
     Route: 058
     Dates: start: 20110517
  3. WELLBUTRIN XL [Concomitant]
  4. TRAZODONE HCL [Concomitant]
  5. SEROQUEL XR [Concomitant]

REACTIONS (5)
  - DEPRESSION [None]
  - SUICIDE ATTEMPT [None]
  - DRUG ABUSE [None]
  - ABNORMAL BEHAVIOUR [None]
  - ALCOHOLISM [None]
